FAERS Safety Report 7556288-1 (Version None)
Quarter: 2011Q2

REPORT INFORMATION
  Report Type: 
  Country: None (occurrence: None)
  Receive Date: 20110620
  Receipt Date: 20110615
  Transmission Date: 20111010
  Serious: Yes (Other)
  Sender: FDA-Public Use
  Company Number: US-PFIZER INC-2011112841

PATIENT
  Sex: Female

DRUGS (3)
  1. ABILIFY [Concomitant]
     Dosage: UNK
  2. PRISTIQ [Suspect]
     Indication: DEPRESSION
     Dosage: 100 MG, 1X/DAY
     Route: 048
     Dates: start: 20090918, end: 20101028
  3. PROZAC [Concomitant]
     Dosage: 20 MG, IN THE MORNING
     Dates: start: 20100825

REACTIONS (1)
  - WEIGHT INCREASED [None]
